FAERS Safety Report 25045070 (Version 2)
Quarter: 2025Q2

REPORT INFORMATION
  Report Type: Spontaneous
  Country: US (occurrence: US)
  Receive Date: 20250306
  Receipt Date: 20250428
  Transmission Date: 20250716
  Serious: Yes (Other)
  Sender: BRISTOL-MYERS SQUIBB COMPANY
  Company Number: US-BRISTOL-MYERS SQUIBB COMPANY-2025-031599

PATIENT
  Age: 60 Year
  Sex: Male

DRUGS (1)
  1. REVLIMID [Suspect]
     Active Substance: LENALIDOMIDE
     Indication: Plasma cell myeloma
     Dosage: FREQUENCY 21?DAILY FOR 21 DAYS ON AND 7 DAYS OFF
     Route: 048

REACTIONS (5)
  - Weight decreased [Unknown]
  - Blood immunoglobulin G decreased [Unknown]
  - Neutropenia [Unknown]
  - Transient ischaemic attack [Unknown]
  - Peripheral swelling [Unknown]
